FAERS Safety Report 6088397-0 (Version None)
Quarter: 2009Q1

REPORT INFORMATION
  Report Type: 
  Country: None (occurrence: None)
  Receive Date: 20090219
  Receipt Date: 20090209
  Transmission Date: 20090719
  Serious: Yes (Other)
  Sender: FDA-Public Use
  Company Number: 2009SP002960

PATIENT
  Age: 70 Year
  Sex: Male

DRUGS (1)
  1. POSACONAZOLE [Suspect]
     Indication: ANTIFUNGAL PROPHYLAXIS

REACTIONS (2)
  - ELECTROCARDIOGRAM QT PROLONGED [None]
  - PNEUMONITIS [None]
